FAERS Safety Report 15756761 (Version 4)
Quarter: 2019Q2

REPORT INFORMATION
  Report Type: Report from Study
  Country: CA (occurrence: CA)
  Receive Date: 20181224
  Receipt Date: 20190611
  Transmission Date: 20190711
  Serious: Yes (Hospitalization)
  Sender: FDA-Public Use
  Company Number: CA-BRISTOL-MYERS SQUIBB COMPANY-BMS-2018-117036

PATIENT
  Age: 64 Year
  Sex: Female

DRUGS (2)
  1. IPILIMUMAB [Suspect]
     Active Substance: IPILIMUMAB
     Indication: MALIGNANT MELANOMA
     Dosage: 210 MG, UNK
     Route: 042
     Dates: start: 20181105, end: 20181106
  2. IMO-2125 [Suspect]
     Active Substance: TILSOTOLIMOD SODIUM
     Indication: MALIGNANT MELANOMA
     Dosage: 1 DOSAGE FORM
     Route: 065
     Dates: start: 20181020, end: 20181127

REACTIONS (2)
  - Blood sodium decreased [Recovered/Resolved]
  - Hypophysitis [Recovered/Resolved]

NARRATIVE: CASE EVENT DATE: 20181124
